FAERS Safety Report 15847846 (Version 1)
Quarter: 2019Q1

REPORT INFORMATION
  Report Type: Spontaneous
  Country: US (occurrence: US)
  Receive Date: 20190121
  Receipt Date: 20190121
  Transmission Date: 20190417
  Serious: No
  Sender: FDA-Public Use
  Company Number: US-BAYER-2019-015718

PATIENT
  Age: 80 Year
  Sex: Female
  Weight: 63 kg

DRUGS (6)
  1. VITAMINS NOS [Concomitant]
     Active Substance: VITAMINS
  2. MONOPLUS [Concomitant]
     Active Substance: FOSINOPRIL SODIUM\HYDROCHLOROTHIAZIDE
     Dosage: UNK
  3. MIRALAX [Suspect]
     Active Substance: POLYETHYLENE GLYCOL 3350
     Indication: GASTROINTESTINAL DISORDER
     Dosage: UNK,;A SPOON EVERY OTHER DAY WITH WATER
     Route: 048
     Dates: start: 201405
  4. ISOTROIN [Concomitant]
     Dosage: UNK
  5. FENTANYL TRANSDERMAL SYSTEM [Concomitant]
     Active Substance: FENTANYL
     Dosage: UNK
  6. DULOXETINE. [Concomitant]
     Active Substance: DULOXETINE
     Dosage: UNK

REACTIONS (2)
  - Expired product administered [Unknown]
  - Wrong technique in product usage process [Unknown]
